FAERS Safety Report 15455036 (Version 1)
Quarter: 2018Q4

REPORT INFORMATION
  Report Type: Spontaneous
  Country: CA (occurrence: CA)
  Receive Date: 20181002
  Receipt Date: 20181002
  Transmission Date: 20190204
  Serious: Yes (Other)
  Sender: FDA-Public Use
  Company Number: CA-PFIZER INC-2018382930

PATIENT
  Age: 53 Year
  Sex: Female

DRUGS (1)
  1. DEPO-MEDROL [Suspect]
     Active Substance: METHYLPREDNISOLONE ACETATE

REACTIONS (13)
  - Ocular hyperaemia [Unknown]
  - Anxiety [Unknown]
  - Helicobacter infection [Unknown]
  - Dyspnoea [Unknown]
  - Pyrexia [Unknown]
  - Product administered at inappropriate site [Unknown]
  - Malaise [Unknown]
  - Abdominal discomfort [Unknown]
  - Infection [Unknown]
  - Headache [Unknown]
  - Pharyngeal oedema [Unknown]
  - Night sweats [Unknown]
  - Negative thoughts [Unknown]
